FAERS Safety Report 25051498 (Version 3)
Quarter: 2025Q2

REPORT INFORMATION
  Report Type: Report from Study
  Country: GB (occurrence: GB)
  Receive Date: 20250307
  Receipt Date: 20250506
  Transmission Date: 20250717
  Serious: Yes (Other)
  Sender: ABBVIE
  Company Number: GB-ABBVIE-6166381

PATIENT
  Age: 80 Year
  Sex: Female

DRUGS (2)
  1. HUMIRA [Suspect]
     Active Substance: ADALIMUMAB
     Indication: Rheumatoid arthritis
     Dosage: 40MG/0.4ML?MISSED DOSE.
     Route: 058
     Dates: end: 20250302
  2. HUMIRA [Suspect]
     Active Substance: ADALIMUMAB
     Route: 058
     Dates: start: 20250316

REACTIONS (4)
  - Hernia [Unknown]
  - Rheumatoid arthritis [Unknown]
  - Product administered at inappropriate site [Unknown]
  - Injection site discharge [Unknown]

NARRATIVE: CASE EVENT DATE: 20250316
